FAERS Safety Report 21615733 (Version 1)
Quarter: 2022Q4

REPORT INFORMATION
  Report Type: Spontaneous
  Country: US (occurrence: None)
  Receive Date: 20221118
  Receipt Date: 20221118
  Transmission Date: 20230112
  Serious: Yes (unspecified)
  Sender: FDA-Public Use
  Company Number: None

PATIENT
  Age: 13 Year
  Sex: Male

DRUGS (1)
  1. CANNABIS SATIVA SUBSP. INDICA TOP [Suspect]
     Active Substance: CANNABIS SATIVA SUBSP. INDICA TOP

REACTIONS (6)
  - Hyperhidrosis [None]
  - Cold sweat [None]
  - Pallor [None]
  - Dysarthria [None]
  - Asthenopia [None]
  - Pulse abnormal [None]

NARRATIVE: CASE EVENT DATE: 20221116
